FAERS Safety Report 25639753 (Version 4)
Quarter: 2025Q4

REPORT INFORMATION
  Report Type: Spontaneous
  Country: EU (occurrence: EU)
  Receive Date: 20250804
  Receipt Date: 20251002
  Transmission Date: 20260119
  Serious: No
  Sender: PFIZER
  Company Number: EU-PFIZER INC-PV202500093193

PATIENT
  Age: 9 Year
  Sex: Male
  Weight: 24 kg

DRUGS (2)
  1. GENOTROPIN [Suspect]
     Active Substance: SOMATROPIN
     Indication: Growth hormone deficiency
     Dosage: 0.8 MG FOR 4 DAYS AND 0.9 MG FOR 2 DAYS AND ONE DAY OFF (6 DAYS)
     Route: 058
     Dates: start: 202301
  2. GENOTROPIN [Suspect]
     Active Substance: SOMATROPIN
     Dosage: 0.8 MG FOR 4 DAYS AND 0.9 MG FOR 2 DAYS AND ONE DAY OFF (6 DAYS)
     Route: 058
     Dates: start: 202301

REACTIONS (2)
  - Drug dose omission by device [Unknown]
  - Device information output issue [Unknown]

NARRATIVE: CASE EVENT DATE: 20250730
